FAERS Safety Report 13568423 (Version 4)
Quarter: 2017Q3

REPORT INFORMATION
  Report Type: Spontaneous
  Country: JP (occurrence: JP)
  Receive Date: 20170522
  Receipt Date: 20170705
  Transmission Date: 20171127
  Serious: Yes (Other)
  Sender: FDA-Public Use
  Company Number: JP-PFIZER INC-2017217519

PATIENT
  Age: 76 Year
  Sex: Female

DRUGS (10)
  1. CANDESARTAN /01349502/ [Suspect]
     Active Substance: CANDESARTAN
     Dosage: UNK
     Route: 048
  2. UFT [Suspect]
     Active Substance: TEGAFUR\URACIL
     Dosage: UNK
     Route: 048
  3. EQUA [Suspect]
     Active Substance: VILDAGLIPTIN
     Dosage: UNK
     Route: 048
  4. CALONAL [Suspect]
     Active Substance: ACETAMINOPHEN
     Dosage: UNK
     Route: 048
  5. METGLUCO [Suspect]
     Active Substance: METFORMIN HYDROCHLORIDE
     Dosage: UNK
     Route: 048
  6. RISEDRON [Suspect]
     Active Substance: RISEDRONATE SODIUM
     Dosage: UNK
     Route: 065
  7. KAKKONTO /07985901/ [Suspect]
     Active Substance: HERBALS
     Dosage: UNK
     Route: 048
  8. LIPITOR [Suspect]
     Active Substance: ATORVASTATIN CALCIUM
     Indication: DYSLIPIDAEMIA
     Dosage: UNK
     Route: 048
  9. DOXAZOSIN MESILATE [Suspect]
     Active Substance: DOXAZOSIN MESYLATE
     Dosage: UNK
     Route: 065
  10. VONOPRAZAN [Suspect]
     Active Substance: VONOPRAZAN
     Dosage: UNK
     Route: 048

REACTIONS (2)
  - Rhabdomyolysis [Recovering/Resolving]
  - Breast cancer [Unknown]
